FAERS Safety Report 15315119 (Version 2)
Quarter: 2018Q3

REPORT INFORMATION
  Report Type: Report from Study
  Country: None (occurrence: US)
  Receive Date: 20180824
  Receipt Date: 20180828
  Transmission Date: 20181010
  Serious: Yes (Hospitalization)
  Sender: FDA-Public Use
  Company Number: US-ABBVIE-18K-163-2394348-00

PATIENT
  Age: 54 Year
  Sex: Female

DRUGS (1)
  1. HUMIRA [Suspect]
     Active Substance: ADALIMUMAB
     Indication: RHEUMATOID ARTHRITIS
     Route: 058

REACTIONS (4)
  - Peripheral swelling [Unknown]
  - Blood glucose decreased [Unknown]
  - Pain in extremity [Not Recovered/Not Resolved]
  - Food poisoning [Unknown]

NARRATIVE: CASE EVENT DATE: 201806
